FAERS Safety Report 11805771 (Version 3)
Quarter: 2015Q4

REPORT INFORMATION
  Report Type: Spontaneous
  Country: JP (occurrence: JP)
  Receive Date: 20151207
  Receipt Date: 20151231
  Transmission Date: 20160305
  Serious: Yes (Life-Threatening)
  Sender: FDA-Public Use
  Company Number: JP-009507513-1511JPN009331

PATIENT
  Age: 15 Year
  Sex: Male
  Weight: 17 kg

DRUGS (13)
  1. ISOFLURANE. [Suspect]
     Active Substance: ISOFLURANE
     Indication: GENERAL ANAESTHESIA
     Dosage: 1 %, UNK
     Route: 055
     Dates: start: 20151113, end: 20151113
  2. ULTIVA [Suspect]
     Active Substance: REMIFENTANIL HYDROCHLORIDE
     Indication: CONVULSION PROPHYLAXIS
     Dosage: 0.2 MICROGRAM PER KILOGRAM/MIN
     Route: 041
     Dates: start: 20150113, end: 20150113
  3. ATROPINE SULFATE. [Concomitant]
     Active Substance: ATROPINE SULFATE
     Dosage: 0.1 MG, QD
     Route: 042
  4. PROPOFOL. [Suspect]
     Active Substance: PROPOFOL
     Dosage: 5 MG/KG/HR
     Route: 041
     Dates: start: 20150113, end: 20150113
  5. EPINEPHRINE (+) LIDOCAINE HYDROCHLORIDE [Suspect]
     Active Substance: EPINEPHRINE\LIDOCAINE HYDROCHLORIDE
     Indication: LOCAL ANAESTHESIA
     Dosage: 0.5 ML, QD
     Route: 061
     Dates: start: 20150113, end: 20150113
  6. MIDAZOLAM [Concomitant]
     Active Substance: MIDAZOLAM\MIDAZOLAM HYDROCHLORIDE
     Dosage: 1 MG, QD
     Route: 051
     Dates: start: 20150113, end: 20150113
  7. SEVOFLURANE. [Suspect]
     Active Substance: SEVOFLURANE
     Indication: INDUCTION OF ANAESTHESIA
     Dosage: 8 %, UNK
     Route: 055
     Dates: start: 20150113, end: 20150113
  8. MIDAZOLAM [Concomitant]
     Active Substance: MIDAZOLAM\MIDAZOLAM HYDROCHLORIDE
     Dosage: 2 MG, QD
     Route: 051
     Dates: start: 20150113, end: 20150113
  9. ACETAMINOPHEN. [Concomitant]
     Active Substance: ACETAMINOPHEN
     Indication: SEDATION
     Dosage: 200 MG, QD
     Route: 042
     Dates: start: 20150113
  10. NITROUS OXIDE. [Concomitant]
     Active Substance: NITROUS OXIDE
     Indication: INDUCTION OF ANAESTHESIA
     Dosage: 4 L/MIN
     Route: 055
     Dates: start: 20150113, end: 20150113
  11. ESLAX [Suspect]
     Active Substance: ROCURONIUM BROMIDE
     Indication: NEUROMUSCULAR BLOCKING THERAPY
     Dosage: 10 MG, QD
     Route: 042
     Dates: start: 20150113, end: 20150113
  12. FENTANYL CITRATE. [Suspect]
     Active Substance: FENTANYL CITRATE
     Dosage: 30 MICROGRAM, QD
     Route: 042
     Dates: start: 20150113, end: 20150113
  13. PROPOFOL. [Suspect]
     Active Substance: PROPOFOL
     Indication: MAINTENANCE OF ANAESTHESIA
     Dosage: 3 MG/KG/HR
     Route: 041
     Dates: start: 20150113, end: 20150113

REACTIONS (1)
  - Upper airway obstruction [Recovered/Resolved]

NARRATIVE: CASE EVENT DATE: 20150113
